FAERS Safety Report 10041520 (Version 1)
Quarter: 2014Q1

REPORT INFORMATION
  Report Type: Spontaneous
  Country: SA (occurrence: SA)
  Receive Date: 20140327
  Receipt Date: 20140327
  Transmission Date: 20141002
  Serious: Yes (Hospitalization, Other)
  Sender: FDA-Public Use
  Company Number: SA-BAUSCH-BL-2014-001470

PATIENT
  Age: 27 Year
  Sex: Male

DRUGS (2)
  1. TOBRAMYCIN [Suspect]
     Indication: CONJUNCTIVITIS
     Route: 061
  2. AMOXICILLIN AND CLAVULANATE [Suspect]
     Indication: CONJUNCTIVITIS

REACTIONS (3)
  - Endophthalmitis [Not Recovered/Not Resolved]
  - Atrophy of globe [Unknown]
  - Drug ineffective [Unknown]
